FAERS Safety Report 14581592 (Version 1)
Quarter: 2018Q1

REPORT INFORMATION
  Report Type: Spontaneous
  Country: US (occurrence: US)
  Receive Date: 20180227
  Receipt Date: 20180227
  Transmission Date: 20180509
  Serious: Yes (Hospitalization)
  Sender: FDA-Public Use
  Company Number: None

PATIENT
  Age: 68 Year
  Sex: Female

DRUGS (1)
  1. ENALAPRIL, 20MG [Suspect]
     Active Substance: ENALAPRIL
     Route: 048

REACTIONS (2)
  - Swollen tongue [None]
  - Food allergy [None]

NARRATIVE: CASE EVENT DATE: 20180226
